FAERS Safety Report 13707089 (Version 1)
Quarter: 2017Q2

REPORT INFORMATION
  Report Type: Spontaneous
  Country: US (occurrence: US)
  Receive Date: 20170630
  Receipt Date: 20170630
  Transmission Date: 20170830
  Serious: No
  Sender: FDA-Public Use
  Company Number: US-GLAXOSMITHKLINE-US2017097576

PATIENT
  Sex: Female

DRUGS (2)
  1. ALLI [Suspect]
     Active Substance: ORLISTAT
     Dosage: UNK
     Dates: end: 201706
  2. ALLI [Suspect]
     Active Substance: ORLISTAT
     Indication: WEIGHT LOSS DIET
     Dosage: UNK
     Dates: end: 201704

REACTIONS (5)
  - Adverse drug reaction [Recovered/Resolved]
  - Tooth disorder [Recovered/Resolved]
  - Gingivitis [Recovered/Resolved]
  - Off label use [Unknown]
  - Gingival disorder [Not Recovered/Not Resolved]
